FAERS Safety Report 5475428-1 (Version None)
Quarter: 2007Q4

REPORT INFORMATION
  Report Type: 
  Country: None (occurrence: None)
  Receive Date: 20071003
  Receipt Date: 20070925
  Transmission Date: 20080405
  Serious: Yes (Death, Hospitalization)
  Sender: FDA-Public Use
  Company Number: CH-JNJFOC-20070905735

PATIENT
  Age: 87 Year
  Sex: Male

DRUGS (10)
  1. HALDOL [Suspect]
     Route: 048
  2. HALDOL [Suspect]
     Indication: DRUG USE FOR UNKNOWN INDICATION
     Route: 048
  3. DIPIPERON [Suspect]
     Route: 048
  4. DIPIPERON [Suspect]
     Indication: DRUG USE FOR UNKNOWN INDICATION
     Route: 048
  5. DEANXIT [Concomitant]
     Route: 048
  6. SEROPRAM [Concomitant]
     Route: 048
  7. FLUIMUCIL [Concomitant]
     Route: 048
  8. TEMESTA [Concomitant]
  9. TEMESTA [Concomitant]
  10. ASPIRIN [Concomitant]
     Route: 048

REACTIONS (6)
  - CYANOSIS [None]
  - DEATH [None]
  - DYSPNOEA [None]
  - HYPERVENTILATION [None]
  - PANIC ATTACK [None]
  - PULSE ABSENT [None]
